FAERS Safety Report 5466964-2 (Version None)
Quarter: 2007Q3

REPORT INFORMATION
  Report Type: 
  Country: None (occurrence: None)
  Receive Date: 20070920
  Receipt Date: 20070911
  Transmission Date: 20080115
  Serious: Yes (Other)
  Sender: FDA-Public Use
  Company Number: WAES 0605FIN00009

PATIENT
  Sex: Female

DRUGS (1)
  1. MAXALT [Suspect]
     Indication: MIGRAINE
     Dosage: 10 MG; PO
     Route: 048

REACTIONS (5)
  - COORDINATION ABNORMAL [None]
  - DIZZINESS [None]
  - GAIT DISTURBANCE [None]
  - HEMIPARESIS [None]
  - VISUAL DISTURBANCE [None]
